FAERS Safety Report 5368238-7 (Version None)
Quarter: 2007Q2

REPORT INFORMATION
  Report Type: 
  Country: None (occurrence: None)
  Receive Date: 20070622
  Receipt Date: 20070622
  Transmission Date: 20071010
  Serious: Yes (Other)
  Sender: FDA-Public Use
  Company Number: None

PATIENT
  Sex: Female
  Weight: 109.3169 kg

DRUGS (1)
  1. LOTREL [Suspect]
     Indication: HYPERTENSION
     Dosage: 10/20MG 1 TAB DAILY ORAL
     Route: 048
     Dates: start: 20070604, end: 20070615

REACTIONS (2)
  - DIZZINESS [None]
  - PARAESTHESIA [None]
